FAERS Safety Report 4370880-7 (Version None)
Quarter: 2004Q2

REPORT INFORMATION
  Report Type: 
  Country: None (occurrence: None)
  Receive Date: 20040601
  Receipt Date: 20040519
  Transmission Date: 20050107
  Serious: Yes (Other)
  Sender: FDA-Public Use
  Company Number: SK-JNJFOC-20040504586

PATIENT
  Age: 42 Year
  Sex: Male

DRUGS (2)
  1. TRAMAL (TRAMADOL HYDROCHLORIDE) INJECTION [Suspect]
     Indication: BACK PAIN
     Dosage: 1 DOSE (S), 1 IN 1 DAY, INTRAMUSCULAR
     Route: 030
     Dates: start: 20010110, end: 20010110
  2. NOVALDIN INJ [Concomitant]

REACTIONS (3)
  - APHASIA [None]
  - ASTHENIA [None]
  - VOMITING [None]
